FAERS Safety Report 22079300 (Version 1)
Quarter: 2023Q1

REPORT INFORMATION
  Report Type: Spontaneous
  Country: US (occurrence: US)
  Receive Date: 20230309
  Receipt Date: 20230309
  Transmission Date: 20230417
  Serious: No
  Sender: FDA-Public Use
  Company Number: US-HORIZON THERAPEUTICS-HZN-2021-001080

PATIENT

DRUGS (3)
  1. RAVICTI [Suspect]
     Active Substance: GLYCEROL PHENYLBUTYRATE
     Indication: Urea cycle disorder
     Dosage: 2 ML, TID
     Route: 048
     Dates: start: 202102
  2. MINERALS\VITAMINS [Concomitant]
     Active Substance: MINERALS\VITAMINS
  3. ARGININE [Concomitant]
     Active Substance: ARGININE

REACTIONS (1)
  - Somnolence [Unknown]
